FAERS Safety Report 4972641-4 (Version None)
Quarter: 2006Q1

REPORT INFORMATION
  Report Type: 
  Country: None (occurrence: None)
  Receive Date: 20060216
  Receipt Date: 20051213
  Transmission Date: 20060701
  Serious: Yes (Life-Threatening, Hospitalization, Disabling)
  Sender: FDA-Public Use
  Company Number: 200512IM000818

PATIENT
  Age: 67 Year
  Sex: Male
  Weight: 83 kg

DRUGS (10)
  1. BLINDED THERAPY (INTERFERON GAMMA-1B) [Suspect]
     Indication: IDIOPATHIC PULMONARY FIBROSIS
     Dosage: 200 UG, TIW, SUBCUTANEOUS
     Route: 058
     Dates: start: 20050509, end: 20051209
  2. FLUVOXAMINE [Concomitant]
  3. ZOPICLONE [Concomitant]
  4. PARIET [Concomitant]
  5. CYTOMEL [Concomitant]
  6. OMEGA PLUS [Concomitant]
  7. GLUCOSAMINE [Concomitant]
  8. VITAMIN E [Concomitant]
  9. ASCORBIC ACID [Concomitant]
  10. SAW PALMETTO [Concomitant]

REACTIONS (1)
  - DEPRESSION [None]
